FAERS Safety Report 8412018-2 (Version None)
Quarter: 2012Q2

REPORT INFORMATION
  Report Type: 
  Country: None (occurrence: None)
  Receive Date: 20120605
  Receipt Date: 20120601
  Transmission Date: 20120825
  Serious: Yes (Hospitalization, Other)
  Sender: FDA-Public Use
  Company Number: US-PFIZER INC-2012033361

PATIENT
  Sex: Male

DRUGS (5)
  1. PRISTIQ [Suspect]
     Indication: DEPRESSION
     Dosage: 50 MG, 1X/DAY (QD)
     Route: 048
     Dates: start: 20100201
  2. LISINOPRIL [Concomitant]
     Indication: HYPERTENSION
     Dosage: 40 MG, (DAILY)
     Dates: start: 20090101
  3. LYRICA [Suspect]
     Indication: NEUROPATHY PERIPHERAL
     Dosage: 100 MG, 3X/DAY (TID)
     Route: 048
     Dates: start: 20110401
  4. BUPROPION [Concomitant]
     Indication: DEPRESSION
     Dosage: 100 MG, 2X/DAY (BID)
     Dates: start: 20100201
  5. LORATADINE [Concomitant]
     Indication: RHINITIS ALLERGIC
     Dosage: 10 MG, (DAILY)
     Dates: start: 20100401

REACTIONS (4)
  - SWELLING [None]
  - CLAVICLE FRACTURE [None]
  - FALL [None]
  - PAIN [None]
